FAERS Safety Report 4699220-0 (Version None)
Quarter: 2005Q2

REPORT INFORMATION
  Report Type: 
  Country: None (occurrence: None)
  Receive Date: 20050624
  Receipt Date: 20050303
  Transmission Date: 20051028
  Serious: Yes (Hospitalization)
  Sender: FDA-Public Use
  Company Number: US-MERCK-0503USA00839

PATIENT
  Age: 62 Year
  Sex: Female
  Weight: 98 kg

DRUGS (9)
  1. VIOXX [Suspect]
     Indication: BACK PAIN
     Route: 048
     Dates: start: 20030728, end: 20040813
  2. UNIRETIC [Concomitant]
     Route: 065
  3. OXAPROZIN [Concomitant]
     Route: 065
  4. ZOCOR [Concomitant]
     Route: 065
  5. MOEXIPRIL HYDROCHLORIDE [Concomitant]
     Route: 065
  6. TOPROL-XL [Concomitant]
     Route: 065
  7. MECLIZINE HYDROCHLORIDE [Concomitant]
     Route: 065
  8. WARFARIN SODIUM [Concomitant]
     Route: 065
  9. LOVENOX [Concomitant]
     Route: 065

REACTIONS (11)
  - AMNESIA [None]
  - ARTHROPATHY [None]
  - ASTHENIA [None]
  - BLOOD CHOLESTEROL INCREASED [None]
  - CHEST PAIN [None]
  - DIFFICULTY IN WALKING [None]
  - DIZZINESS [None]
  - DYSPNOEA [None]
  - HEADACHE [None]
  - HYPERTENSION [None]
  - THROMBOSIS [None]
